FAERS Safety Report 8221735-9 (Version None)
Quarter: 2012Q1

REPORT INFORMATION
  Report Type: 
  Country: None (occurrence: None)
  Receive Date: 20120320
  Receipt Date: 20120305
  Transmission Date: 20120608
  Serious: Yes (Death, Hospitalization)
  Sender: FDA-Public Use
  Company Number: IT-WATSON-2012-04166

PATIENT
  Age: 62 Year
  Sex: Male

DRUGS (14)
  1. PREDNISONE TAB [Suspect]
     Indication: B-CELL LYMPHOMA
     Dosage: UNK
     Route: 065
     Dates: start: 20050901, end: 20080701
  2. CISPLATIN [Suspect]
     Indication: B-CELL LYMPHOMA
  3. VINCRISTINE [Suspect]
     Indication: B-CELL LYMPHOMA
     Route: 065
  4. EPIRUBICIN [Suspect]
     Indication: B-CELL LYMPHOMA
  5. BLEOMYCIN SULFATE [Suspect]
     Indication: B-CELL LYMPHOMA
  6. CYCLOPHOSPHAMIDE [Suspect]
     Indication: B-CELL LYMPHOMA
  7. DOXORUBICIN HCL [Suspect]
     Indication: B-CELL LYMPHOMA
  8. IFOSFAMIDE [Suspect]
     Indication: B-CELL LYMPHOMA
  9. ETOPOSIDE [Suspect]
     Indication: B-CELL LYMPHOMA
  10. DEXAMETHASONE [Suspect]
     Indication: B-CELL LYMPHOMA
  11. IBRITUMOMAB TIUXETAN [Suspect]
     Indication: B-CELL LYMPHOMA
  12. PREDNISOLONE [Suspect]
     Indication: B-CELL LYMPHOMA
     Dosage: UNK
     Route: 065
     Dates: start: 20090801
  13. RITUXIMAB [Suspect]
     Indication: B-CELL LYMPHOMA
  14. CYTARABINE [Suspect]
     Indication: B-CELL LYMPHOMA

REACTIONS (3)
  - CARDIAC FAILURE [None]
  - MYELODYSPLASTIC SYNDROME [None]
  - EJECTION FRACTION DECREASED [None]
